FAERS Safety Report 7801910-5 (Version None)
Quarter: 2011Q4

REPORT INFORMATION
  Report Type: 
  Country: None (occurrence: None)
  Receive Date: 20111007
  Receipt Date: 20111003
  Transmission Date: 20120403
  Serious: Yes (Other)
  Sender: FDA-Public Use
  Company Number: US-PFIZER INC-2010179900

PATIENT
  Sex: Female
  Weight: 86.168 kg

DRUGS (3)
  1. LIPITOR [Suspect]
     Indication: BLOOD CHOLESTEROL INCREASED
     Dosage: UNK
     Dates: start: 20020101, end: 20031001
  2. PAROXETINE [Concomitant]
     Indication: DEPRESSION
     Dosage: UNK
  3. ADVAIR DISKUS 100/50 [Concomitant]
     Indication: ASTHMA
     Dosage: 250/50, UNK

REACTIONS (10)
  - RHABDOMYOLYSIS [None]
  - LIMB INJURY [None]
  - MUSCLE SPASMS [None]
  - PAIN IN EXTREMITY [None]
  - MYALGIA [None]
  - FIBROMYALGIA [None]
  - MYOPATHY [None]
  - MUSCULAR WEAKNESS [None]
  - PARAESTHESIA [None]
  - MYOSITIS [None]
